FAERS Safety Report 13945776 (Version 1)
Quarter: 2017Q3

REPORT INFORMATION
  Report Type: Spontaneous
  Country: ZA (occurrence: ZA)
  Receive Date: 20170907
  Receipt Date: 20170907
  Transmission Date: 20171128
  Serious: Yes (Other)
  Sender: FDA-Public Use
  Company Number: ZA-PFIZER INC-2017383778

PATIENT
  Age: 41 Year
  Sex: Female
  Weight: 86 kg

DRUGS (5)
  1. ARAVA [Concomitant]
     Active Substance: LEFLUNOMIDE
     Dosage: 20 MG, DAILY
     Dates: start: 201311
  2. CHLOROQUINE. [Concomitant]
     Active Substance: CHLOROQUINE
     Dosage: 200 MG, DAILY
     Dates: start: 2013
  3. ARCOXIA [Concomitant]
     Active Substance: ETORICOXIB
     Dosage: UNK
     Dates: start: 2012, end: 2013
  4. SALAZOPYRIN [Suspect]
     Active Substance: SULFASALAZINE
     Dosage: 1 G, UNK
     Dates: start: 201306, end: 201311
  5. METHOTREXATE. [Concomitant]
     Active Substance: METHOTREXATE
     Dosage: 17.5 MG, WEEKLY
     Dates: start: 201306

REACTIONS (3)
  - Peptic ulcer [Unknown]
  - Drug ineffective [Unknown]
  - Selective IgG subclass deficiency [Unknown]

NARRATIVE: CASE EVENT DATE: 2013
